FAERS Safety Report 16562145 (Version 1)
Quarter: 2019Q3

REPORT INFORMATION
  Report Type: Spontaneous
  Country: US (occurrence: US)
  Receive Date: 20190530
  Receipt Date: 20190530
  Transmission Date: 20191004
  Serious: No
  Sender: FDA-Public Use
  Company Number: None

PATIENT
  Age: 58 Year
  Sex: Male

DRUGS (2)
  1. COMETRIQ [Concomitant]
     Active Substance: CABOZANTINIB S-MALATE
  2. YERVOY [Suspect]
     Active Substance: IPILIMUMAB
     Dosage: ?          OTHER FREQUENCY:UNKNOWN;?
     Route: 026
     Dates: start: 201905

REACTIONS (1)
  - Off label use [None]

NARRATIVE: CASE EVENT DATE: 20190530
